FAERS Safety Report 19781179 (Version 2)
Quarter: 2021Q3

REPORT INFORMATION
  Report Type: Spontaneous
  Country: RU (occurrence: RU)
  Receive Date: 20210902
  Receipt Date: 20210914
  Transmission Date: 20211014
  Serious: Yes (Other)
  Sender: FDA-Public Use
  Company Number: RU-BIOMARINAP-RU-2021-138273

PATIENT
  Age: 6 Year
  Sex: Female
  Weight: 17 kg

DRUGS (1)
  1. BRINEURA [Suspect]
     Active Substance: CERLIPONASE ALFA
     Indication: NEURONAL CEROID LIPOFUSCINOSIS
     Dosage: 300 MILLIGRAM
     Route: 020
     Dates: start: 20210420

REACTIONS (3)
  - Pyrexia [Recovered/Resolved]
  - Pleocytosis [Recovered/Resolved]
  - CNS ventriculitis [Recovered/Resolved]

NARRATIVE: CASE EVENT DATE: 20210420
